FAERS Safety Report 4710049-7 (Version None)
Quarter: 2005Q3

REPORT INFORMATION
  Report Type: 
  Country: None (occurrence: None)
  Receive Date: 20050707
  Receipt Date: 20050629
  Transmission Date: 20060218
  Serious: Yes (Hospitalization, Disabling)
  Sender: FDA-Public Use
  Company Number: 200511042BCC

PATIENT
  Age: 75 Year
  Sex: Female

DRUGS (3)
  1. ALEVE [Suspect]
     Dosage: 220 MG, ONCE, ORAL
     Route: 048
     Dates: start: 20050109
  2. ACETYLSALICYLIC ACID SRT [Suspect]
     Dosage: ORAL
     Route: 048
  3. ZETIA [Concomitant]

REACTIONS (4)
  - ASTHENIA [None]
  - CEREBROVASCULAR ACCIDENT [None]
  - DYSSTASIA [None]
  - HYPOKINESIA [None]
